FAERS Safety Report 8145863-1 (Version None)
Quarter: 2012Q1

REPORT INFORMATION
  Report Type: 
  Country: None (occurrence: None)
  Receive Date: 20120217
  Receipt Date: 20110620
  Transmission Date: 20120608
  Serious: No
  Sender: FDA-Public Use
  Company Number: US-ABBOTT-11P-163-0733663-00

PATIENT
  Sex: Male
  Weight: 68.554 kg

DRUGS (2)
  1. DIABETIC MEDICATION [Concomitant]
     Indication: PRODUCT USED FOR UNKNOWN INDICATION
  2. SIMCOR [Suspect]
     Indication: LOW DENSITY LIPOPROTEIN INCREASED
     Dosage: 500/40MG
     Dates: start: 20110530

REACTIONS (1)
  - PARAESTHESIA [None]
